FAERS Safety Report 4281575-2 (Version None)
Quarter: 2004Q1

REPORT INFORMATION
  Report Type: 
  Country: None (occurrence: None)
  Receive Date: 20040123
  Receipt Date: 20030324
  Transmission Date: 20041129
  Serious: Yes (Hospitalization, Other)
  Sender: FDA-Public Use
  Company Number: HQ1086216FEB2000

PATIENT
  Age: 78 Year
  Sex: Male
  Weight: 83.99 kg

DRUGS (6)
  1. CORDARONE [Suspect]
     Indication: ARRHYTHMIA
     Dosage: ORAL
     Route: 048
     Dates: start: 19960101, end: 19990801
  2. ENALAPRIL MALEATE [Concomitant]
  3. LEVOTHYROXINE SODIUM [Concomitant]
  4. FUROSEMIDE [Concomitant]
  5. DOXAZOSIN MESYLATE [Concomitant]
  6. SINGULAIR [Concomitant]

REACTIONS (2)
  - LUNG DISORDER [None]
  - NEUROPATHY PERIPHERAL [None]
